FAERS Safety Report 9140546 (Version 1)
Quarter: 2013Q1

REPORT INFORMATION
  Report Type: Spontaneous
  Country: IT (occurrence: IT)
  Receive Date: 20130305
  Receipt Date: 20130305
  Transmission Date: 20140127
  Serious: Yes (Hospitalization)
  Sender: FDA-Public Use
  Company Number: IT-BAYER-2013-027865

PATIENT
  Age: 77 Year
  Sex: Female

DRUGS (8)
  1. ACETYLSALICYLIC ACID({=100 MG) [Suspect]
     Indication: MYOCARDIAL ISCHAEMIA
     Dosage: 100 MG, QD
     Route: 048
     Dates: start: 20100101, end: 20130111
  2. COUMADIN [Suspect]
     Indication: ATRIAL FIBRILLATION
     Dosage: 5 MG, PRN
     Route: 048
     Dates: start: 20100101, end: 20130111
  3. CORDARONE [Concomitant]
  4. LASIX [Concomitant]
  5. OROTRE [Concomitant]
  6. TACHIDOL [Concomitant]
  7. PANTOPRAZOLE [Concomitant]
  8. UNCODEABLE ^UNCLASSIFIABLE^ [Concomitant]

REACTIONS (1)
  - Anaemia [Recovered/Resolved]
